FAERS Safety Report 7419799-5 (Version None)
Quarter: 2011Q2

REPORT INFORMATION
  Report Type: 
  Country: None (occurrence: None)
  Receive Date: 20110418
  Receipt Date: 20110406
  Transmission Date: 20111010
  Serious: Yes (Other)
  Sender: FDA-Public Use
  Company Number: ZA-JNJFOC-20110403381

PATIENT
  Sex: Female

DRUGS (3)
  1. CAELYX [Suspect]
     Indication: PRODUCT USED FOR UNKNOWN INDICATION
     Dosage: CYCLE 2
     Route: 042
  2. CAELYX [Suspect]
     Dosage: CYCLE 3
     Route: 042
  3. CAELYX [Suspect]
     Dosage: CYCLE 1
     Route: 042

REACTIONS (3)
  - PURULENCE [None]
  - BLISTER [None]
  - SKIN EXFOLIATION [None]
